FAERS Safety Report 10041313 (Version 1)
Quarter: 2014Q1

REPORT INFORMATION
  Report Type: Spontaneous
  Country: US (occurrence: US)
  Receive Date: 20140327
  Receipt Date: 20140327
  Transmission Date: 20141002
  Serious: Yes (Other)
  Sender: FDA-Public Use
  Company Number: US-TEVA-471285USA

PATIENT
  Age: 21 Year
  Sex: Female
  Weight: 62.65 kg

DRUGS (1)
  1. PARAGARD 380A [Suspect]
     Indication: CONTRACEPTION
     Route: 015
     Dates: start: 20131203

REACTIONS (4)
  - Device dislocation [Not Recovered/Not Resolved]
  - Pelvic inflammatory disease [Recovered/Resolved]
  - Urinary tract infection [Recovered/Resolved]
  - Dysmenorrhoea [Not Recovered/Not Resolved]
